FAERS Safety Report 9736023 (Version 2)
Quarter: 2013Q4

REPORT INFORMATION
  Report Type: Spontaneous
  Country: AT (occurrence: AT)
  Receive Date: 20131206
  Receipt Date: 20131218
  Transmission Date: 20140711
  Serious: Yes (Death)
  Sender: FDA-Public Use
  Company Number: AT-ACTELION-A-CH2013-92178

PATIENT
  Age: 23 Year
  Sex: Female

DRUGS (2)
  1. ZAVESCA [Suspect]
     Indication: NIEMANN-PICK DISEASE
     Dosage: 100 MG, BID
     Route: 048
     Dates: start: 201206
  2. ZAVESCA [Suspect]
     Dosage: 100 MG, QD
     Route: 048
     Dates: start: 201205

REACTIONS (1)
  - Death [Fatal]
